FAERS Safety Report 10763851 (Version 5)
Quarter: 2015Q2

REPORT INFORMATION
  Report Type: Report from Study
  Country: US (occurrence: US)
  Receive Date: 20150204
  Receipt Date: 20150417
  Transmission Date: 20150821
  Serious: Yes (Hospitalization)
  Sender: FDA-Public Use
  Company Number: US-SA-2015SA009789

PATIENT
  Age: 59 Year
  Sex: Female

DRUGS (2)
  1. AUBAGIO [Suspect]
     Active Substance: TERIFLUNOMIDE
     Indication: MULTIPLE SCLEROSIS
     Route: 048
     Dates: start: 20141219
  2. XANAX [Suspect]
     Active Substance: ALPRAZOLAM
     Route: 065
     Dates: end: 201501

REACTIONS (10)
  - Unevaluable event [Recovering/Resolving]
  - Hypoaesthesia [Unknown]
  - Drug dose omission [Unknown]
  - Memory impairment [Unknown]
  - Agitation [Unknown]
  - Activities of daily living impaired [Unknown]
  - Pain in extremity [Unknown]
  - Fatigue [Unknown]
  - Nasopharyngitis [Unknown]
  - Blood glucose increased [Unknown]

NARRATIVE: CASE EVENT DATE: 201501
